FAERS Safety Report 5004530-3 (Version None)
Quarter: 2006Q2

REPORT INFORMATION
  Report Type: 
  Country: None (occurrence: None)
  Receive Date: 20060516
  Receipt Date: 20060516
  Transmission Date: 20061013
  Serious: Yes (Hospitalization)
  Sender: FDA-Public Use
  Company Number: None

PATIENT
  Age: 50 Year
  Sex: Female
  Weight: 121 kg

DRUGS (2)
  1. RIBAVIRIN [Suspect]
     Dosage: 600 MG PO BID
     Route: 048
     Dates: start: 20051221, end: 20060123
  2. PEG-INTERFERON ALFA-2B SC [Suspect]
     Dosage: 150 MCG 2 WEEK
     Route: 058
     Dates: start: 20051221, end: 20060123

REACTIONS (6)
  - ABDOMINAL PAIN UPPER [None]
  - CHOLELITHIASIS [None]
  - DIARRHOEA [None]
  - HAEMATOCRIT DECREASED [None]
  - NAUSEA [None]
  - VOMITING [None]
